FAERS Safety Report 7915454-3 (Version None)
Quarter: 2011Q4

REPORT INFORMATION
  Report Type: 
  Country: None (occurrence: None)
  Receive Date: 20111115
  Receipt Date: 20111108
  Transmission Date: 20120403
  Serious: Yes (Other)
  Sender: FDA-Public Use
  Company Number: AU-ALLERGAN-1112736US

PATIENT
  Age: 48 Year
  Sex: Female

DRUGS (2)
  1. BOTULINUM TOXIN TYPE A [Suspect]
     Dosage: 14 UNITS, SINGLE
     Route: 030
     Dates: start: 20110926, end: 20110926
  2. BOTULINUM TOXIN TYPE A [Suspect]
     Indication: PRODUCT USED FOR UNKNOWN INDICATION
     Dosage: 12 UNITS, SINGLE
     Route: 030

REACTIONS (5)
  - CONVULSION [None]
  - PHOTOPSIA [None]
  - SYNCOPE [None]
  - LOSS OF CONSCIOUSNESS [None]
  - MALAISE [None]
